FAERS Safety Report 6547926-0 (Version None)
Quarter: 2010Q1

REPORT INFORMATION
  Report Type: 
  Country: None (occurrence: None)
  Receive Date: 20100124
  Receipt Date: 20091120
  Transmission Date: 20100710
  Serious: No
  Sender: FDA-Public Use
  Company Number: US-ALEXION-A200901005

PATIENT
  Sex: Male

DRUGS (4)
  1. SOLIRIS [Suspect]
     Indication: PAROXYSMAL NOCTURNAL HAEMOGLOBINURIA
     Dosage: UNK
     Route: 042
     Dates: start: 20090101, end: 20090101
  2. SOLIRIS [Suspect]
     Dosage: 900 MG, UNK
     Route: 042
     Dates: start: 20090101
  3. FOLIC ACID [Concomitant]
     Dosage: UNK
     Route: 048
  4. IRON [Concomitant]
     Dosage: UNK
     Route: 048

REACTIONS (3)
  - DYSPEPSIA [None]
  - FREQUENT BOWEL MOVEMENTS [None]
  - PERIPHERAL COLDNESS [None]
